FAERS Safety Report 23274184 (Version 1)
Quarter: 2023Q4

REPORT INFORMATION
  Report Type: Spontaneous
  Country: US (occurrence: US)
  Receive Date: 20231208
  Receipt Date: 20231208
  Transmission Date: 20240109
  Serious: Yes (Hospitalization, Other)
  Sender: FDA-Public Use
  Company Number: US-drreddys-SPO/USA/23/0187978

PATIENT
  Age: 69 Year
  Sex: Male

DRUGS (8)
  1. DEXAMETHASONE [Suspect]
     Active Substance: DEXAMETHASONE
     Indication: Thrombocytopenic purpura
     Dosage: DAY-15: 4-DAY COURSE
  2. PREDNISONE [Suspect]
     Active Substance: PREDNISONE
     Indication: Thrombocytopenic purpura
     Dosage: DAY 1: 14-DAY COURSE
  3. PREDNISONE [Suspect]
     Active Substance: PREDNISONE
     Dosage: DAY 32
  4. PREDNISONE [Suspect]
     Active Substance: PREDNISONE
     Dosage: DAY 25
  5. PREDNISONE [Suspect]
     Active Substance: PREDNISONE
     Dosage: DAY 29
  6. IBRUTINIB [Suspect]
     Active Substance: IBRUTINIB
     Indication: Chronic lymphocytic leukaemia
     Dosage: DAY 25
  7. RITUXIMAB [Suspect]
     Active Substance: RITUXIMAB
     Indication: Thrombocytopenic purpura
     Dosage: DAY 29
  8. RITUXIMAB [Suspect]
     Active Substance: RITUXIMAB
     Dosage: DAY 22

REACTIONS (5)
  - Enterococcal infection [Recovered/Resolved]
  - Necrotising fasciitis [Recovered/Resolved]
  - Staphylococcal infection [Recovered/Resolved]
  - Dermatophytosis [Recovered/Resolved]
  - Trichophytosis [Recovered/Resolved]
